FAERS Safety Report 10170807 (Version 1)
Quarter: 2014Q2

REPORT INFORMATION
  Report Type: Spontaneous
  Country: FR (occurrence: FR)
  Receive Date: 20140514
  Receipt Date: 20140514
  Transmission Date: 20141212
  Serious: Yes (Hospitalization)
  Sender: FDA-Public Use
  Company Number: FR-JNJFOC-20140506222

PATIENT
  Age: 63 Year
  Sex: Female

DRUGS (5)
  1. REMICADE [Suspect]
     Indication: POLYMYOSITIS
     Route: 042
     Dates: start: 200705, end: 20140204
  2. METOJECT [Concomitant]
     Route: 065
  3. SPECIAFOLDINE [Concomitant]
     Route: 065
  4. FORSTEO [Concomitant]
     Dosage: 20 MICROGRAMS/80 MICROLITERS, SOLUTION FOR INJECTION IN PREFILLED PEN
     Route: 065
  5. UVEDOSE [Concomitant]
     Route: 065

REACTIONS (2)
  - Mucinous breast carcinoma [Not Recovered/Not Resolved]
  - Off label use [Unknown]
